FAERS Safety Report 18435928 (Version 1)
Quarter: 2020Q4

REPORT INFORMATION
  Report Type: Spontaneous
  Country: US (occurrence: US)
  Receive Date: 20201028
  Receipt Date: 20201028
  Transmission Date: 20210114
  Serious: Yes (Death)
  Sender: FDA-Public Use
  Company Number: None

PATIENT
  Age: 63 Year
  Sex: Female

DRUGS (1)
  1. POMALYST [Suspect]
     Active Substance: POMALIDOMIDE
     Indication: PLASMA CELL MYELOMA
     Route: 048
     Dates: start: 20190612

REACTIONS (5)
  - Shock [None]
  - Multiple organ dysfunction syndrome [None]
  - Brain abscess [None]
  - Nocardiosis [None]
  - Acute respiratory failure [None]

NARRATIVE: CASE EVENT DATE: 20200929
